FAERS Safety Report 8197627-0 (Version None)
Quarter: 2012Q1

REPORT INFORMATION
  Report Type: 
  Country: None (occurrence: None)
  Receive Date: 20120309
  Receipt Date: 20120307
  Transmission Date: 20120608
  Serious: Yes (Hospitalization)
  Sender: FDA-Public Use
  Company Number: US-FRI-1000028914

PATIENT
  Age: 56 Year
  Sex: Male

DRUGS (6)
  1. VIIBRYD [Suspect]
     Indication: OBSESSIVE-COMPULSIVE DISORDER
     Dosage: 20 MG
     Route: 048
  2. ALLEGRA [Concomitant]
     Indication: SEASONAL ALLERGY
  3. VIIBRYD [Suspect]
     Indication: ADJUSTMENT DISORDER
     Dosage: 40 MG
     Route: 048
  4. CRESTOR [Concomitant]
     Indication: BLOOD CHOLESTEROL INCREASED
  5. VIIBRYD [Suspect]
     Indication: ANXIETY
     Dosage: 10 MG
     Route: 048
     Dates: start: 20111101
  6. NASONEX [Concomitant]
     Indication: SEASONAL ALLERGY

REACTIONS (3)
  - AMNESIA [None]
  - OFF LABEL USE [None]
  - CONFUSIONAL STATE [None]
